FAERS Safety Report 18601369 (Version 1)
Quarter: 2020Q4

REPORT INFORMATION
  Report Type: Spontaneous
  Country: BR (occurrence: BR)
  Receive Date: 20201210
  Receipt Date: 20201210
  Transmission Date: 20210114
  Serious: Yes (Other)
  Sender: FDA-Public Use
  Company Number: NVSC2020BR324735

PATIENT
  Sex: Male

DRUGS (2)
  1. GLIVEC [Suspect]
     Active Substance: IMATINIB MESYLATE
     Indication: PRODUCT USED FOR UNKNOWN INDICATION
     Dosage: 800 MG (STARTED 11 YEARS AGO)
     Route: 065
  2. SUTENT [Concomitant]
     Active Substance: SUNITINIB MALATE
     Indication: PRODUCT USED FOR UNKNOWN INDICATION
     Dosage: UNK
     Route: 065
     Dates: start: 20201009

REACTIONS (8)
  - Neoplasm [Unknown]
  - Dizziness [Unknown]
  - Feeling of despair [Unknown]
  - Weight decreased [Unknown]
  - Vomiting [Unknown]
  - Neoplasm progression [Unknown]
  - Pain [Unknown]
  - Malaise [Unknown]
